FAERS Safety Report 15335467 (Version 4)
Quarter: 2021Q3

REPORT INFORMATION
  Report Type: Report from Study
  Country: US (occurrence: US)
  Receive Date: 20180830
  Receipt Date: 20210911
  Transmission Date: 20211014
  Serious: Yes (Other)
  Sender: FDA-Public Use
  Company Number: US-SHIRE-US201833500

PATIENT
  Age: 64 Year
  Sex: Female

DRUGS (3)
  1. PARATHYROID HORMONE [Suspect]
     Active Substance: PARATHYROID HORMONE
     Indication: HYPOPARATHYROIDISM
     Dosage: 75 MICROGRAM, QD
     Route: 058
     Dates: start: 20151104
  2. PARATHYROID HORMONE [Suspect]
     Active Substance: PARATHYROID HORMONE
     Indication: HYPOPARATHYROIDISM
     Dosage: 75 MICROGRAM, QD
     Route: 058
     Dates: start: 20151104
  3. PARATHYROID HORMONE [Suspect]
     Active Substance: PARATHYROID HORMONE
     Indication: HYPOPARATHYROIDISM
     Dosage: 75 MICROGRAM, QD
     Route: 058
     Dates: start: 20151104

REACTIONS (7)
  - Paraesthesia [Recovered/Resolved]
  - Illness [Unknown]
  - Incorrect dose administered [Unknown]
  - Device malfunction [Unknown]
  - Muscle spasms [Recovered/Resolved]
  - Eye paraesthesia [Recovered/Resolved]
  - Breast cancer metastatic [Unknown]

NARRATIVE: CASE EVENT DATE: 20210824
